FAERS Safety Report 6474267-2 (Version None)
Quarter: 2009Q4

REPORT INFORMATION
  Report Type: 
  Country: None (occurrence: None)
  Receive Date: 20091204
  Receipt Date: 20091125
  Transmission Date: 20100525
  Serious: Yes (Other)
  Sender: FDA-Public Use
  Company Number: PHFR2004GB03440

PATIENT
  Sex: Male

DRUGS (3)
  1. CLOZARIL [Suspect]
     Route: 048
     Dates: start: 20040109
  2. CLOZARIL [Suspect]
     Dates: start: 20050916
  3. CLOZARIL [Suspect]
     Dosage: 250 MG DAILY
     Route: 048
     Dates: start: 20071211, end: 20090717

REACTIONS (2)
  - DROOLING [None]
  - MEAN CELL VOLUME DECREASED [None]
